FAERS Safety Report 10287680 (Version 1)
Quarter: 2014Q3

REPORT INFORMATION
  Report Type: Spontaneous
  Country: JP (occurrence: JP)
  Receive Date: 20140709
  Receipt Date: 20140709
  Transmission Date: 20150326
  Serious: Yes (Other)
  Sender: FDA-Public Use
  Company Number: PHHY2013JP157827

PATIENT
  Age: 70 Year
  Sex: Female

DRUGS (2)
  1. SANDOSTATINE LAR [Suspect]
     Active Substance: OCTREOTIDE ACETATE
     Indication: PANCREATIC NEUROENDOCRINE TUMOUR
     Dates: start: 201212
  2. AFINITOR DISPERZ [Suspect]
     Active Substance: EVEROLIMUS
     Dosage: 10 MG
     Dates: start: 201212

REACTIONS (2)
  - Metastases to bone [Unknown]
  - Interstitial lung disease [Unknown]

NARRATIVE: CASE EVENT DATE: 201302
